FAERS Safety Report 18686240 (Version 2)
Quarter: 2021Q1

REPORT INFORMATION
  Report Type: Other
  Country: AR (occurrence: AR)
  Receive Date: 20201231
  Receipt Date: 20210105
  Transmission Date: 20210419
  Serious: Yes (Hospitalization, Disabling, Other)
  Sender: FDA-Public Use
  Company Number: AR-ROCHE-1799647

PATIENT
  Age: 58 Year
  Sex: Female

DRUGS (7)
  1. XOLAIR [Suspect]
     Active Substance: OMALIZUMAB
     Route: 058
     Dates: start: 201305
  2. MONTELUKAST [Concomitant]
     Active Substance: MONTELUKAST SODIUM
     Indication: PRODUCT USED FOR UNKNOWN INDICATION
     Route: 065
  3. XOLAIR [Suspect]
     Active Substance: OMALIZUMAB
     Dosage: (150 MG)
     Route: 065
     Dates: start: 2015
  4. XOLAIR [Suspect]
     Active Substance: OMALIZUMAB
     Route: 065
     Dates: start: 20170620
  5. XOLAIR [Suspect]
     Active Substance: OMALIZUMAB
     Indication: ASTHMA
     Dosage: (150 MG)
     Route: 065
     Dates: start: 2010
  6. XOLAIR [Suspect]
     Active Substance: OMALIZUMAB
     Route: 058
     Dates: start: 20130501
  7. IPRATROPIUM BROMIDE. [Concomitant]
     Active Substance: IPRATROPIUM BROMIDE
     Indication: PRODUCT USED FOR UNKNOWN INDICATION
     Route: 055

REACTIONS (15)
  - Diabetes mellitus [Unknown]
  - Hypertension [Unknown]
  - Arrhythmia [Recovered/Resolved]
  - Osteoarthritis [Recovering/Resolving]
  - Coronary artery disease [Unknown]
  - Dyspnoea [Unknown]
  - Nervousness [Unknown]
  - Neuralgia [Unknown]
  - Anxiety [Unknown]
  - Malaise [Not Recovered/Not Resolved]
  - Choking sensation [Unknown]
  - Pneumonia [Not Recovered/Not Resolved]
  - Gait disturbance [Unknown]
  - Insomnia [Not Recovered/Not Resolved]
  - Chest discomfort [Recovering/Resolving]
